FAERS Safety Report 10656316 (Version 2)
Quarter: 2014Q4

REPORT INFORMATION
  Report Type: Spontaneous
  Country: US (occurrence: US)
  Receive Date: 20141216
  Receipt Date: 20141216
  Transmission Date: 20150529
  Serious: Yes (Hospitalization)
  Sender: FDA-Public Use
  Company Number: US-CELGENEUS-163-20785-14044916

PATIENT
  Sex: Male
  Weight: 69.9 kg

DRUGS (6)
  1. THALOMID [Suspect]
     Active Substance: THALIDOMIDE
     Indication: PROSTATE CANCER
     Dosage: 200 MILLIGRAM
     Route: 048
     Dates: start: 20140128, end: 20140408
  2. AVASTIN [Concomitant]
     Active Substance: BEVACIZUMAB
     Indication: PRODUCT USED FOR UNKNOWN INDICATION
     Route: 041
     Dates: start: 20140208
  3. LANTUS [Concomitant]
     Active Substance: INSULIN GLARGINE
     Indication: DIABETES MELLITUS
     Dosage: 40UNITS
     Route: 065
     Dates: start: 20140128
  4. TAXOTERE [Concomitant]
     Active Substance: DOCETAXEL
     Indication: PRODUCT USED FOR UNKNOWN INDICATION
     Route: 041
     Dates: start: 20140208
  5. METFORMIN [Concomitant]
     Active Substance: METFORMIN HYDROCHLORIDE
     Indication: DIABETES MELLITUS
     Dosage: 2000 MILLIGRAM
     Route: 065
     Dates: start: 20140107
  6. NEUPOGEN [Concomitant]
     Active Substance: FILGRASTIM
     Indication: WHITE BLOOD CELL COUNT DECREASED
     Dosage: 600 UNITS
     Route: 058
     Dates: start: 20140225

REACTIONS (1)
  - Loss of consciousness [Recovered/Resolved]

NARRATIVE: CASE EVENT DATE: 2014
